FAERS Safety Report 13570481 (Version 3)
Quarter: 2017Q4

REPORT INFORMATION
  Report Type: Spontaneous
  Country: SK (occurrence: SK)
  Receive Date: 20170522
  Receipt Date: 20171027
  Transmission Date: 20180320
  Serious: Yes (Other)
  Sender: FDA-Public Use
  Company Number: SK-REGENERON PHARMACEUTICALS, INC.-2017-16020

PATIENT

DRUGS (3)
  1. EYLEA [Suspect]
     Active Substance: AFLIBERCEPT
     Dosage: UNK, LAST DOSE PRIOR THE EVENT
     Route: 031
     Dates: start: 20160527, end: 20160527
  2. EYLEA [Suspect]
     Active Substance: AFLIBERCEPT
     Indication: RETINAL NEOVASCULARISATION
     Dosage: TOTAL 16 DOSE OF AFLIBERCEPT
     Route: 031
     Dates: start: 20140417
  3. EYLEA [Suspect]
     Active Substance: AFLIBERCEPT
     Dosage: UNK
     Route: 031

REACTIONS (2)
  - Retinal pigment epithelial tear [Recovering/Resolving]
  - Retinal scar [Unknown]

NARRATIVE: CASE EVENT DATE: 20160527
